FAERS Safety Report 6635869-3 (Version None)
Quarter: 2010Q1

REPORT INFORMATION
  Report Type: 
  Country: None (occurrence: None)
  Receive Date: 20100316
  Receipt Date: 20100308
  Transmission Date: 20100710
  Serious: Yes (Hospitalization)
  Sender: FDA-Public Use
  Company Number: FR-TEVA-226758ISR

PATIENT
  Age: 54 Year
  Sex: Male

DRUGS (5)
  1. FLUOROURACIL [Suspect]
     Indication: COLON CANCER
     Route: 040
  2. FLUOROURACIL [Suspect]
     Route: 042
  3. FLUOROURACIL [Suspect]
     Route: 040
  4. FLUOROURACIL [Suspect]
     Route: 042
  5. FOLINIC ACID [Concomitant]

REACTIONS (7)
  - ASTHENIA [None]
  - COLON CANCER RECURRENT [None]
  - DIHYDROPYRIMIDINE DEHYDROGENASE DEFICIENCY [None]
  - DRUG TOXICITY [None]
  - FEBRILE NEUTROPENIA [None]
  - MUCOSAL INFLAMMATION [None]
  - PALMAR-PLANTAR ERYTHRODYSAESTHESIA SYNDROME [None]
